FAERS Safety Report 11022269 (Version 1)
Quarter: 2015Q2

REPORT INFORMATION
  Report Type: Spontaneous
  Country: SA (occurrence: SA)
  Receive Date: 20150413
  Receipt Date: 20150413
  Transmission Date: 20150821
  Serious: Yes (Life-Threatening)
  Sender: FDA-Public Use
  Company Number: SA-MYLANLABS-2015M1011999

PATIENT

DRUGS (1)
  1. FENTANYL. [Suspect]
     Active Substance: FENTANYL
     Indication: INDUCTION OF ANAESTHESIA
     Dosage: BOLUS OF 100 MCG (1.2MCG/KG)
     Route: 065

REACTIONS (1)
  - Muscle rigidity [Recovered/Resolved]
